FAERS Safety Report 5209258-2 (Version None)
Quarter: 2006Q4

REPORT INFORMATION
  Report Type: 
  Country: None (occurrence: None)
  Receive Date: 20061101
  Receipt Date: 20060707
  Transmission Date: 20070319
  Serious: No
  Sender: FDA-Public Use
  Company Number: 2006PV017130

PATIENT
  Age: 36 Year
  Sex: Female
  Weight: 119.296 kg

DRUGS (4)
  1. SYMLIN [Suspect]
     Indication: DIABETES MELLITUS NON-INSULIN-DEPENDENT
     Dosage: 30 MCG;TID;SC
     Route: 058
     Dates: start: 20060623, end: 20060703
  2. LEVIMIR [Concomitant]
  3. HUMALOG [Concomitant]
  4. GLUCOPHAGE [Concomitant]

REACTIONS (2)
  - INJECTION SITE DERMATITIS [None]
  - INJECTION SITE IRRITATION [None]
